FAERS Safety Report 10916357 (Version 1)
Quarter: 2015Q1

REPORT INFORMATION
  Report Type: Report from Study
  Country: US (occurrence: US)
  Receive Date: 20150316
  Receipt Date: 20150316
  Transmission Date: 20150721
  Serious: Yes (Death, Other)
  Sender: FDA-Public Use
  Company Number: US-ASTELLAS-2015US007795

PATIENT
  Age: 27 Year
  Sex: Male

DRUGS (93)
  1. ERLOTINIB [Suspect]
     Active Substance: ERLOTINIB
     Indication: BRAIN NEOPLASM MALIGNANT
     Route: 048
     Dates: start: 20051114
  2. AVASTIN [Suspect]
     Active Substance: BEVACIZUMAB
     Route: 042
     Dates: start: 20050930
  3. ARANESP [Concomitant]
     Active Substance: DARBEPOETIN ALFA
     Indication: PRODUCT USED FOR UNKNOWN INDICATION
     Route: 058
  4. TEMODAR [Concomitant]
     Active Substance: TEMOZOLOMIDE
     Indication: PRODUCT USED FOR UNKNOWN INDICATION
     Dosage: 0.25 MG, UNKNOWN FREQ.
     Route: 042
  5. ACCUTANE [Concomitant]
     Active Substance: ISOTRETINOIN
     Indication: PRODUCT USED FOR UNKNOWN INDICATION
     Dosage: 0.25 MG, UNKNOWN FREQ.
     Route: 042
  6. TEMOZOLOMIDE. [Concomitant]
     Active Substance: TEMOZOLOMIDE
     Indication: PRODUCT USED FOR UNKNOWN INDICATION
     Dosage: 0.25 MG, UNKNOWN FREQ.
     Route: 042
  7. NAMENDA [Concomitant]
     Active Substance: MEMANTINE HYDROCHLORIDE
     Dosage: 0.25 MG, UNKNOWN FREQ.
     Route: 042
  8. OXYCODONE [Concomitant]
     Active Substance: OXYCODONE
     Dosage: 2 CUPS, TWICE DAILY
     Route: 042
  9. LEXAPRO                            /01588501/ [Concomitant]
     Dosage: 0.25 MG, UNKNOWN FREQ.
     Route: 042
  10. LEXAPRO                            /01588501/ [Concomitant]
     Dosage: 0.25 MG, UNKNOWN FREQ.
     Route: 042
  11. TYLENOL [Concomitant]
     Active Substance: ACETAMINOPHEN
     Dosage: 0.25 MG, UNKNOWN FREQ.
     Route: 042
  12. PROTONIX [Concomitant]
     Active Substance: PANTOPRAZOLE SODIUM
     Dosage: 0.25 MG, UNKNOWN FREQ.
     Route: 042
  13. OXANDRIN [Concomitant]
     Active Substance: OXANDROLONE
     Dosage: 2 CUPS, TWICE DAILY
     Route: 065
  14. CAMPTOSAR [Concomitant]
     Active Substance: IRINOTECAN HYDROCHLORIDE
     Indication: PRODUCT USED FOR UNKNOWN INDICATION
     Route: 042
  15. ACCUTANE [Concomitant]
     Active Substance: ISOTRETINOIN
     Dosage: 0.25 MG, UNKNOWN FREQ.
     Route: 042
  16. ACCUTANE [Concomitant]
     Active Substance: ISOTRETINOIN
     Dosage: 0.25 MG, UNKNOWN FREQ.
     Route: 042
  17. NAMENDA [Concomitant]
     Active Substance: MEMANTINE HYDROCHLORIDE
     Dosage: 0.25 MG, UNKNOWN FREQ.
     Route: 042
  18. KEPPRA [Concomitant]
     Active Substance: LEVETIRACETAM
     Indication: PRODUCT USED FOR UNKNOWN INDICATION
     Route: 048
  19. COD LIVER OIL [Concomitant]
     Active Substance: COD LIVER OIL
     Dosage: 0.25 MG, UNKNOWN FREQ.
     Route: 042
  20. OXYCODONE [Concomitant]
     Active Substance: OXYCODONE
     Indication: PRODUCT USED FOR UNKNOWN INDICATION
     Dosage: UNK UNK, AS NEEDED
     Route: 042
  21. SERIPHOS [Concomitant]
     Dosage: 0.25 MG, UNKNOWN FREQ.
     Route: 042
  22. LORTAB [Concomitant]
     Active Substance: ACETAMINOPHEN\HYDROCODONE BITARTRATE
     Dosage: 2 CUPS, TWICE DAILY
     Route: 065
  23. GRANISETRON HYDROCHLORIDE. [Concomitant]
     Active Substance: GRANISETRON HYDROCHLORIDE
     Indication: PRODUCT USED FOR UNKNOWN INDICATION
     Route: 042
  24. NEULASTA [Concomitant]
     Active Substance: PEGFILGRASTIM
     Indication: PRODUCT USED FOR UNKNOWN INDICATION
     Route: 058
  25. DEXAMETHASONE. [Concomitant]
     Active Substance: DEXAMETHASONE
     Indication: PRODUCT USED FOR UNKNOWN INDICATION
     Route: 042
  26. ALOXI [Concomitant]
     Active Substance: PALONOSETRON HYDROCHLORIDE
     Indication: PRODUCT USED FOR UNKNOWN INDICATION
     Route: 065
  27. PHENERGAN [Concomitant]
     Active Substance: PROMETHAZINE HYDROCHLORIDE
     Indication: PRODUCT USED FOR UNKNOWN INDICATION
     Route: 042
  28. PALONOSETRON [Concomitant]
     Active Substance: PALONOSETRON
     Dosage: 0.25 MG, UNKNOWN FREQ.
     Route: 042
  29. TEMODAR [Concomitant]
     Active Substance: TEMOZOLOMIDE
     Dosage: 0.25 MG, UNKNOWN FREQ.
     Route: 042
  30. TIOGUANINE [Concomitant]
     Active Substance: THIOGUANINE ANHYDROUS
     Dosage: 0.25 MG, UNKNOWN FREQ.
     Route: 042
  31. TRIAMCINOLONE [Concomitant]
     Active Substance: TRIAMCINOLONE
     Dosage: 0.25 MG, UNKNOWN FREQ.
     Route: 042
  32. LEXAPRO                            /01588501/ [Concomitant]
     Dosage: 2 CUPS, TWICE DAILY
     Route: 042
  33. PROVIGIL [Concomitant]
     Active Substance: MODAFINIL
     Dosage: 2 CUPS, TWICE DAILY
     Route: 065
  34. TYLENOL [Concomitant]
     Active Substance: ACETAMINOPHEN
     Dosage: 2 CUPS, TWICE DAILY
     Route: 065
  35. PROTONIX [Concomitant]
     Active Substance: PANTOPRAZOLE SODIUM
     Dosage: 0.25 MG, UNKNOWN FREQ.
     Route: 042
  36. METFORMIN [Concomitant]
     Active Substance: METFORMIN HYDROCHLORIDE
     Indication: PRODUCT USED FOR UNKNOWN INDICATION
     Route: 048
  37. LORTAB [Concomitant]
     Active Substance: ACETAMINOPHEN\HYDROCODONE BITARTRATE
     Indication: PRODUCT USED FOR UNKNOWN INDICATION
     Dosage: 0.25 MG, UNKNOWN FREQ.
     Route: 042
  38. LEVETIRACETAM. [Concomitant]
     Active Substance: LEVETIRACETAM
     Indication: PRODUCT USED FOR UNKNOWN INDICATION
     Route: 048
  39. DECADRON [Concomitant]
     Active Substance: DEXAMETHASONE
     Indication: PRODUCT USED FOR UNKNOWN INDICATION
     Route: 065
  40. PALONOSETRON [Concomitant]
     Active Substance: PALONOSETRON
     Dosage: 0.25 MG, UNKNOWN FREQ.
     Route: 042
  41. LOMUSTINE. [Concomitant]
     Active Substance: LOMUSTINE
     Dosage: 0.25 MG, UNKNOWN FREQ.
     Route: 042
  42. TIOGUANINE [Concomitant]
     Active Substance: THIOGUANINE ANHYDROUS
     Dosage: 0.25 MG, UNKNOWN FREQ.
     Route: 042
  43. NAMENDA [Concomitant]
     Active Substance: MEMANTINE HYDROCHLORIDE
     Indication: PRODUCT USED FOR UNKNOWN INDICATION
     Dosage: 0.25 MG, UNKNOWN FREQ.
     Route: 042
  44. KEPPRA [Concomitant]
     Active Substance: LEVETIRACETAM
     Dosage: 0.25 MG, UNKNOWN FREQ.
     Route: 042
  45. GREEN TEA                          /01578101/ [Concomitant]
     Dosage: 2 CUPS, TWICE DAILY
     Route: 048
  46. OXANDRIN [Concomitant]
     Active Substance: OXANDROLONE
     Indication: PRODUCT USED FOR UNKNOWN INDICATION
     Route: 048
  47. OXANDRIN [Concomitant]
     Active Substance: OXANDROLONE
     Dosage: 0.25 MG, UNKNOWN FREQ.
     Route: 042
  48. METFORMIN [Concomitant]
     Active Substance: METFORMIN HYDROCHLORIDE
     Dosage: 0.25 MG, UNKNOWN FREQ.
     Route: 042
  49. LORTAB [Concomitant]
     Active Substance: ACETAMINOPHEN\HYDROCODONE BITARTRATE
     Dosage: 0.25 MG, UNKNOWN FREQ.
     Route: 042
  50. AVASTIN [Suspect]
     Active Substance: BEVACIZUMAB
     Indication: BRAIN NEOPLASM MALIGNANT
     Route: 042
  51. ATIVAN [Concomitant]
     Active Substance: LORAZEPAM
     Indication: PRODUCT USED FOR UNKNOWN INDICATION
     Route: 048
  52. TEMODAR [Concomitant]
     Active Substance: TEMOZOLOMIDE
     Dosage: 0.25 MG, UNKNOWN FREQ.
     Route: 042
  53. TEMOZOLOMIDE. [Concomitant]
     Active Substance: TEMOZOLOMIDE
     Dosage: 2 CUPS, ONCE DAILY
     Route: 065
  54. AMBIEN [Concomitant]
     Active Substance: ZOLPIDEM TARTRATE
     Indication: PRODUCT USED FOR UNKNOWN INDICATION
     Dosage: 0.25 MG, UNKNOWN FREQ.
     Route: 042
  55. AMBIEN [Concomitant]
     Active Substance: ZOLPIDEM TARTRATE
     Dosage: 0.25 MG, UNKNOWN FREQ.
     Route: 042
  56. KEPPRA [Concomitant]
     Active Substance: LEVETIRACETAM
     Dosage: 0.25 MG, UNKNOWN FREQ.
     Route: 042
  57. SERIPHOS [Concomitant]
     Dosage: 1 DF, HOURLY
     Route: 042
  58. XELODA [Suspect]
     Active Substance: CAPECITABINE
     Indication: PRODUCT USED FOR UNKNOWN INDICATION
     Dosage: UNK, UNKNOWN FREQ.
     Route: 065
  59. ALOXI [Concomitant]
     Active Substance: PALONOSETRON HYDROCHLORIDE
     Dosage: 0.25 MG, UNKNOWN FREQ.
     Route: 065
  60. DECADRON [Concomitant]
     Active Substance: DEXAMETHASONE
     Dosage: 0.25 UNK, UNK
     Route: 065
  61. TEMOZOLOMIDE. [Concomitant]
     Active Substance: TEMOZOLOMIDE
     Dosage: 0.25 MG, UNKNOWN FREQ.
     Route: 042
  62. TEMOZOLOMIDE. [Concomitant]
     Active Substance: TEMOZOLOMIDE
     Dosage: 0.25 MG, UNKNOWN FREQ.
     Route: 042
  63. GREEN TEA                          /01578101/ [Concomitant]
     Dosage: 0.25 MG, UNKNOWN FREQ.
     Route: 042
  64. OXYCODONE [Concomitant]
     Active Substance: OXYCODONE
     Dosage: 0.25 MG, UNKNOWN FREQ.
     Route: 042
  65. PROVIGIL [Concomitant]
     Active Substance: MODAFINIL
     Indication: PRODUCT USED FOR UNKNOWN INDICATION
     Dosage: 0.25 MG, UNKNOWN FREQ.
     Route: 042
  66. PROVIGIL [Concomitant]
     Active Substance: MODAFINIL
     Dosage: 0.25 MG, UNKNOWN FREQ.
     Route: 042
  67. PROTONIX [Concomitant]
     Active Substance: PANTOPRAZOLE SODIUM
     Dosage: 2 CUPS, TWICE DAILY
     Route: 065
  68. METFORMIN [Concomitant]
     Active Substance: METFORMIN HYDROCHLORIDE
     Dosage: 0.25 MG, UNKNOWN FREQ.
     Route: 042
  69. METFORMIN [Concomitant]
     Active Substance: METFORMIN HYDROCHLORIDE
     Dosage: 2 CUPS, TWICE DAILY
     Route: 065
  70. ALIMTA [Concomitant]
     Active Substance: PEMETREXED DISODIUM
     Indication: PRODUCT USED FOR UNKNOWN INDICATION
     Dosage: 0.25 MG, UNKNOWN FREQ.
     Route: 042
  71. ALIMTA [Concomitant]
     Active Substance: PEMETREXED DISODIUM
     Dosage: 2 CUPS, TWICE DAILY
     Route: 065
  72. ATROPINE SULFATE. [Concomitant]
     Active Substance: ATROPINE SULFATE
     Indication: PRODUCT USED FOR UNKNOWN INDICATION
     Dosage: 0.5-1MG, UNKNOWN FREQ.
     Route: 042
  73. ZOFRAN                             /00955301/ [Concomitant]
     Active Substance: ONDANSETRON HYDROCHLORIDE
     Indication: PRODUCT USED FOR UNKNOWN INDICATION
     Route: 042
  74. LOMUSTINE. [Concomitant]
     Active Substance: LOMUSTINE
     Dosage: 0.25 MG, UNKNOWN FREQ.
     Route: 042
  75. TIOGUANINE [Concomitant]
     Active Substance: THIOGUANINE ANHYDROUS
     Indication: PRODUCT USED FOR UNKNOWN INDICATION
     Dosage: 0.25 MG, UNKNOWN FREQ.
     Route: 042
  76. AMBIEN [Concomitant]
     Active Substance: ZOLPIDEM TARTRATE
     Dosage: 0.25 MG, UNKNOWN FREQ.
     Route: 042
  77. GREEN TEA                          /01578101/ [Concomitant]
     Indication: PRODUCT USED FOR UNKNOWN INDICATION
     Dosage: UNK UNK, TWICE DAILY
     Route: 048
  78. OXYCODONE [Concomitant]
     Active Substance: OXYCODONE
     Dosage: 0.25 MG, UNKNOWN FREQ.
     Route: 042
  79. SERIPHOS [Concomitant]
     Dosage: 0.25 MG, UNKNOWN FREQ.
     Route: 042
  80. LEXAPRO                            /01588501/ [Concomitant]
     Indication: PRODUCT USED FOR UNKNOWN INDICATION
     Route: 048
  81. TYLENOL [Concomitant]
     Active Substance: ACETAMINOPHEN
     Indication: PRODUCT USED FOR UNKNOWN INDICATION
     Dosage: 0.25 MG, UNKNOWN FREQ.
     Route: 042
  82. ALIMTA [Concomitant]
     Active Substance: PEMETREXED DISODIUM
     Dosage: 0.25 MG, UNKNOWN FREQ.
     Route: 042
  83. KYTRIL [Concomitant]
     Active Substance: GRANISETRON HYDROCHLORIDE
     Indication: PRODUCT USED FOR UNKNOWN INDICATION
     Route: 048
  84. PALONOSETRON [Concomitant]
     Active Substance: PALONOSETRON
     Indication: PRODUCT USED FOR UNKNOWN INDICATION
     Dosage: 0.25 MG, ONCE DAILY
     Route: 042
  85. LOMUSTINE. [Concomitant]
     Active Substance: LOMUSTINE
     Indication: PRODUCT USED FOR UNKNOWN INDICATION
     Dosage: 0.25 MG, UNKNOWN FREQ.
     Route: 042
  86. TRIAMCINOLONE [Concomitant]
     Active Substance: TRIAMCINOLONE
     Indication: PRODUCT USED FOR UNKNOWN INDICATION
     Dosage: 0.25 MG, UNKNOWN FREQ.
     Route: 042
  87. TRIAMCINOLONE [Concomitant]
     Active Substance: TRIAMCINOLONE
     Dosage: 0.25 MG, UNK
     Route: 042
  88. COD LIVER OIL [Concomitant]
     Active Substance: COD LIVER OIL
     Indication: PRODUCT USED FOR UNKNOWN INDICATION
     Dosage: 1 TEASPOON, TWICE DAILY
     Route: 048
  89. COD LIVER OIL [Concomitant]
     Active Substance: COD LIVER OIL
     Dosage: 0.25 MG, UNKNOWN FREQ.
     Route: 042
  90. GREEN TEA                          /01578101/ [Concomitant]
     Dosage: 0.25 MG, UNKNOWN FREQ.
     Route: 042
  91. SERIPHOS [Concomitant]
     Dosage: 2 CUPS, TWICE DAILY
     Route: 042
  92. PROTONIX [Concomitant]
     Active Substance: PANTOPRAZOLE SODIUM
     Indication: PRODUCT USED FOR UNKNOWN INDICATION
     Route: 048
  93. OXANDRIN [Concomitant]
     Active Substance: OXANDROLONE
     Dosage: 0.25 MG, UNKNOWN FREQ.
     Route: 042

REACTIONS (28)
  - Memory impairment [Unknown]
  - Sinusitis [Unknown]
  - Rhinorrhoea [Unknown]
  - Diabetes mellitus [Unknown]
  - Lung disorder [Recovering/Resolving]
  - Gingivitis [Unknown]
  - Malignant neoplasm progression [Recovering/Resolving]
  - Hemiparesis [Unknown]
  - Xeroderma [Unknown]
  - Fatigue [Unknown]
  - Visual field defect [Unknown]
  - Headache [Unknown]
  - Tremor [Recovering/Resolving]
  - Alopecia [Unknown]
  - Oral discomfort [Unknown]
  - Confusional state [Unknown]
  - Dehydration [Unknown]
  - Nausea [Unknown]
  - Rash [Unknown]
  - Decreased appetite [Unknown]
  - Bone marrow failure [Unknown]
  - Vomiting [Unknown]
  - Hypervigilance [Unknown]
  - Weight decreased [Unknown]
  - Asthenia [Unknown]
  - Death [Fatal]
  - Diarrhoea [Unknown]
  - Gastrooesophageal reflux disease [Recovering/Resolving]

NARRATIVE: CASE EVENT DATE: 20051121
